FAERS Safety Report 9125336 (Version 1)
Quarter: 2013Q1

REPORT INFORMATION
  Report Type: Spontaneous
  Country: US (occurrence: US)
  Receive Date: 20130227
  Receipt Date: 20130227
  Transmission Date: 20140127
  Serious: Yes (Hospitalization)
  Sender: FDA-Public Use
  Company Number: US-GLAXOSMITHKLINE-A0849030A

PATIENT
  Sex: Female

DRUGS (1)
  1. AVANDIA [Suspect]
     Indication: TYPE 2 DIABETES MELLITUS
     Dosage: 8MG PER DAY
     Route: 048
     Dates: start: 20040618, end: 20060413

REACTIONS (9)
  - Myocardial ischaemia [Unknown]
  - Cardiac failure congestive [Unknown]
  - Cardiovascular disorder [Unknown]
  - Oedema [Unknown]
  - General physical health deterioration [Unknown]
  - Dyspnoea [Unknown]
  - Local swelling [Unknown]
  - Insomnia [Unknown]
  - Mobility decreased [Unknown]
